FAERS Safety Report 23051370 (Version 1)
Quarter: 2023Q4

REPORT INFORMATION
  Report Type: Report from Study
  Country: ZA (occurrence: None)
  Receive Date: 20231010
  Receipt Date: 20231010
  Transmission Date: 20240110
  Serious: Yes (Other)
  Sender: FDA-Public Use
  Company Number: 2023A226146

PATIENT
  Age: 60 Year
  Sex: Male

DRUGS (10)
  1. BUDESONIDE\FORMOTEROL FUMARATE DIHYDRATE [Suspect]
     Active Substance: BUDESONIDE\FORMOTEROL FUMARATE DIHYDRATE
     Indication: Asthma
     Dosage: 4.5 UG/INHAL UNKNOWN UNKNOWN
     Route: 055
  2. ECOTRIN [Concomitant]
     Active Substance: ASPIRIN
     Indication: Blood thromboplastin
     Route: 048
  3. THEOPHYLLINE ANH 300 KIARA [Concomitant]
     Indication: Asthma
     Route: 048
  4. CARVEDILOL [Concomitant]
     Active Substance: CARVEDILOL
     Indication: Hypertension
     Route: 048
  5. ALDACTONE [Concomitant]
     Active Substance: SPIRONOLACTONE
     Indication: Hypertension
     Route: 048
  6. ATORVASTATIN [Concomitant]
     Active Substance: ATORVASTATIN
     Indication: Blood cholesterol
     Route: 048
  7. ANNIN [Concomitant]
     Indication: Hypertension
     Route: 048
  8. SILDENAFIL CIPLA [Concomitant]
     Indication: Hypertension
     Route: 048
  9. LASIX [Concomitant]
     Active Substance: FUROSEMIDE
     Indication: Hypertension
     Route: 048
  10. BISOPROLOL FUMARATE\PERINDOPRIL ARGININE [Concomitant]
     Active Substance: BISOPROLOL FUMARATE\PERINDOPRIL ARGININE
     Indication: Hypertension
     Route: 048

REACTIONS (3)
  - Cardiac failure congestive [Unknown]
  - Heart rate irregular [Unknown]
  - Drug intolerance [Unknown]
